FAERS Safety Report 8151187 (Version 2)
Quarter: 2012Q4

REPORT INFORMATION
  Report Type: 
  Country: CA (occurrence: CA)
  Receive Date: 20110922
  Receipt Date: 20120907
  Transmission Date: 20130627
  Serious: Yes (Other)
  Sender: FDA-Public Use
  Company Number: CA-JNJFOC-20110906048

PATIENT
  Sex: Female

DRUGS (1)
  1. REMICADE [Suspect]
     Indication: BEHCET^S SYNDROME
     Route: 042

REACTIONS (1)
  - Blindness [Unknown]
